FAERS Safety Report 19542983 (Version 1)
Quarter: 2021Q3

REPORT INFORMATION
  Report Type: Spontaneous
  Country: US (occurrence: US)
  Receive Date: 20210714
  Receipt Date: 20210714
  Transmission Date: 20211014
  Serious: Yes (Death, Other)
  Sender: FDA-Public Use
  Company Number: US-STRIDES ARCOLAB LIMITED-2021SP019386

PATIENT
  Age: 69 Year
  Sex: Male

DRUGS (1)
  1. RANITIDINE. [Suspect]
     Active Substance: RANITIDINE
     Indication: DYSPEPSIA
     Dosage: UNK
     Route: 048
     Dates: start: 201409, end: 202001

REACTIONS (6)
  - Oesophageal carcinoma [Fatal]
  - Lung neoplasm malignant [Fatal]
  - Bladder cancer [Fatal]
  - Hepatic cancer [Fatal]
  - Prostate cancer [Fatal]
  - Oesophageal carcinoma [Fatal]

NARRATIVE: CASE EVENT DATE: 20160101
